FAERS Safety Report 5579184-8 (Version None)
Quarter: 2008Q1

REPORT INFORMATION
  Report Type: 
  Country: None (occurrence: None)
  Receive Date: 20080102
  Receipt Date: 20071227
  Transmission Date: 20080703
  Serious: Yes (Other)
  Sender: FDA-Public Use
  Company Number: B0485953A

PATIENT
  Age: 50 Year
  Sex: Male

DRUGS (12)
  1. PAXIL [Suspect]
     Indication: DYSTHYMIC DISORDER
     Dosage: 50MG PER DAY
     Route: 048
     Dates: start: 20020323
  2. MEILAX [Concomitant]
     Dosage: 1MG PER DAY
     Route: 048
     Dates: start: 20020323
  3. SOLANAX [Concomitant]
     Dosage: .8MG THREE TIMES PER DAY
     Route: 048
  4. SOLANAX [Concomitant]
     Dosage: 1.6MG PER DAY
     Route: 048
  5. MYSLEE [Concomitant]
     Dosage: 5MG PER DAY
     Route: 048
     Dates: start: 20020322
  6. DESYREL [Concomitant]
     Dosage: 50MG PER DAY
     Route: 048
  7. DESYREL [Concomitant]
     Dosage: 50MG PER DAY
     Route: 048
  8. RIVOTRIL [Concomitant]
     Dosage: 1MG PER DAY
     Route: 048
     Dates: start: 20030109
  9. LENDORMIN [Concomitant]
     Dosage: .5MG PER DAY
     Route: 048
     Dates: start: 20020323
  10. DEPAS [Concomitant]
     Dosage: 1MG PER DAY
     Route: 048
  11. DEPAS [Concomitant]
     Route: 048
     Dates: start: 20070323
  12. SOLANAX [Concomitant]
     Dosage: .8MG PER DAY
     Route: 048
     Dates: start: 20020330

REACTIONS (2)
  - IDIOSYNCRATIC ALCOHOL INTOXICATION [None]
  - VIOLENCE-RELATED SYMPTOM [None]
